FAERS Safety Report 9159961 (Version 3)
Quarter: 2014Q1

REPORT INFORMATION
  Report Type: Report from Study
  Country: BR (occurrence: BR)
  Receive Date: 20130313
  Receipt Date: 20140326
  Transmission Date: 20141002
  Serious: Yes (Other)
  Sender: FDA-Public Use
  Company Number: PHHY2013BR024035

PATIENT
  Sex: Female
  Weight: 64 kg

DRUGS (3)
  1. ACLASTA [Suspect]
     Indication: OSTEOPOROSIS
     Dosage: 5 MG, PER YEAR
     Route: 042
     Dates: start: 2012
  2. ASPIRINA PREVENT [Concomitant]
     Dosage: 100 MG, UNK
     Dates: start: 2012
  3. SIMVASTATIN [Concomitant]
     Dosage: 20 MG, UNK
     Dates: start: 2012

REACTIONS (6)
  - Mass [Recovering/Resolving]
  - Deformity [Recovering/Resolving]
  - Nodule [Recovered/Resolved]
  - Pulmonary mass [Unknown]
  - Swelling face [Recovering/Resolving]
  - Headache [Unknown]
